FAERS Safety Report 9792622 (Version 1)
Quarter: 2014Q1

REPORT INFORMATION
  Report Type: Spontaneous
  Country: US (occurrence: US)
  Receive Date: 20140102
  Receipt Date: 20140102
  Transmission Date: 20141002
  Serious: No
  Sender: FDA-Public Use
  Company Number: US-SA-2013SA101315

PATIENT
  Age: 40 Year
  Sex: Female

DRUGS (9)
  1. AUBAGIO [Suspect]
     Route: 048
     Dates: start: 20130506
  2. VESICARE [Concomitant]
     Indication: MICTURITION URGENCY
     Route: 065
     Dates: start: 20130114
  3. LAMICTAL [Concomitant]
     Indication: AFFECTIVE DISORDER
     Route: 065
     Dates: start: 20130114
  4. CYMBALTA [Concomitant]
     Indication: AFFECTIVE DISORDER
     Route: 065
     Dates: start: 20130114
  5. NUVIGIL [Concomitant]
     Indication: FATIGUE
     Route: 065
     Dates: start: 20130114
  6. MICARDIS [Concomitant]
     Indication: HYPERTENSION
     Route: 065
     Dates: start: 20130114
  7. ZYRTEC [Concomitant]
     Indication: SEASONAL ALLERGY
     Route: 065
     Dates: start: 20130114
  8. VITAMIN D [Concomitant]
     Indication: ROUTINE HEALTH MAINTENANCE
     Route: 065
     Dates: start: 20130114
  9. B COMPLEX [Concomitant]
     Indication: ROUTINE HEALTH MAINTENANCE
     Route: 065
     Dates: start: 20130114

REACTIONS (1)
  - Alopecia [Unknown]
